FAERS Safety Report 25779283 (Version 1)
Quarter: 2025Q3

REPORT INFORMATION
  Report Type: Spontaneous
  Country: GB (occurrence: GB)
  Receive Date: 20250909
  Receipt Date: 20250909
  Transmission Date: 20251021
  Serious: Yes (Other)
  Sender: MERCK SHARP & DOHME LLC
  Company Number: GB-009507513-2326920

PATIENT
  Sex: Male

DRUGS (1)
  1. ZEPATIER [Suspect]
     Active Substance: ELBASVIR\GRAZOPREVIR
     Indication: Hepatitis C
     Dosage: 1 DOSAGE FORM, EVERY 1 DAY (1 EA , OD); STRENGTH: 50MG/100 MG
     Route: 048

REACTIONS (1)
  - Blindness [Not Recovered/Not Resolved]
